FAERS Safety Report 7316256-1 (Version None)
Quarter: 2011Q1

REPORT INFORMATION
  Report Type: 
  Country: None (occurrence: None)
  Receive Date: 20110225
  Receipt Date: 20110211
  Transmission Date: 20110831
  Serious: Yes (Other)
  Sender: FDA-Public Use
  Company Number: GB-CELGENEUS-167-21880-11021488

PATIENT
  Age: 68 Year
  Sex: Male

DRUGS (8)
  1. REVLIMID [Suspect]
     Route: 048
     Dates: start: 20090901
  2. REVLIMID [Suspect]
     Route: 048
     Dates: start: 20091001, end: 20100902
  3. DEXAMETHASONE [Concomitant]
     Route: 065
  4. MORPHINE SULFATE [Concomitant]
     Route: 065
  5. FINASTERIDE [Concomitant]
     Route: 065
  6. GABAPENTIN [Suspect]
     Route: 065
     Dates: start: 20070701, end: 20110210
  7. DEXAMETHASONE [Concomitant]
     Route: 065
     Dates: start: 20090901
  8. CLEXANE [Concomitant]
     Route: 065
     Dates: end: 20100902

REACTIONS (1)
  - IDIOPATHIC THROMBOCYTOPENIC PURPURA [None]
